FAERS Safety Report 24149474 (Version 1)
Quarter: 2024Q3

REPORT INFORMATION
  Report Type: Spontaneous
  Country: JP (occurrence: JP)
  Receive Date: 20240730
  Receipt Date: 20240730
  Transmission Date: 20241017
  Serious: Yes (Hospitalization, Other)
  Sender: Haleon PLC
  Company Number: JP-HALEON-2188455

PATIENT
  Sex: Male

DRUGS (1)
  1. NICOTINELL [Suspect]
     Active Substance: NICOTINE
     Indication: Smoking cessation therapy
     Dosage: TIME INTERVAL: AS NECESSARY
     Dates: start: 20240625, end: 20240722

REACTIONS (1)
  - Cholecystitis [Unknown]
